FAERS Safety Report 8514151-3 (Version None)
Quarter: 2012Q3

REPORT INFORMATION
  Report Type: 
  Country: None (occurrence: None)
  Receive Date: 20120717
  Receipt Date: 20120705
  Transmission Date: 20120928
  Serious: Yes (Death, Hospitalization)
  Sender: FDA-Public Use
  Company Number: US-JNJFOC-20120704916

PATIENT
  Sex: Male
  Weight: 90.72 kg

DRUGS (4)
  1. INVEGA SUSTENNA [Suspect]
     Indication: BIPOLAR DISORDER
     Route: 030
     Dates: start: 20110101
  2. INVEGA SUSTENNA [Suspect]
     Indication: SCHIZOPHRENIA
     Route: 030
     Dates: start: 20110101
  3. HALDOL [Suspect]
     Indication: BIPOLAR DISORDER
     Route: 065
     Dates: start: 20110101, end: 20110101
  4. HALDOL [Suspect]
     Indication: SCHIZOPHRENIA
     Route: 065
     Dates: start: 20110101, end: 20110101

REACTIONS (3)
  - SUICIDAL IDEATION [None]
  - ADVERSE DRUG REACTION [None]
  - COMPLETED SUICIDE [None]
